FAERS Safety Report 14654034 (Version 6)
Quarter: 2022Q3

REPORT INFORMATION
  Report Type: Spontaneous
  Country: PL (occurrence: PL)
  Receive Date: 20180319
  Receipt Date: 20220624
  Transmission Date: 20221027
  Serious: Yes (Hospitalization)
  Sender: FDA-Public Use
  Company Number: PHHY2018PL030471

PATIENT
  Age: 39 Year
  Sex: Male

DRUGS (9)
  1. ATORVASTATIN [Suspect]
     Active Substance: ATORVASTATIN
     Indication: Atrial fibrillation
     Dosage: 1 DOSAGE FORM, QD EVENING
     Route: 065
  2. BISOPROLOL [Suspect]
     Active Substance: BISOPROLOL
     Indication: Atrial fibrillation
     Dosage: 1 DOSAGE FORM, QD
     Route: 065
  3. METOPROLOL [Suspect]
     Active Substance: METOPROLOL
     Indication: Atrial fibrillation
     Dosage: 25 MG, QD
     Route: 065
  4. METOPROLOL [Suspect]
     Active Substance: METOPROLOL
     Indication: Arrhythmia
  5. DABIGATRAN [Suspect]
     Active Substance: DABIGATRAN
     Indication: Atrial fibrillation
     Dosage: 300 MG, QD, 150 MG, BID FOR 8 WEEKS
     Route: 065
  6. AMLODIPINE BESYLATE\LISINOPRIL [Suspect]
     Active Substance: AMLODIPINE BESYLATE\LISINOPRIL
     Indication: Atrial fibrillation
     Dosage: 2 DOSAGE FORM, BID (ONE TABLET IN THE MORNING AND HALF TABLET IN EVENING)
     Route: 065
  7. PROPAFENONE [Suspect]
     Active Substance: PROPAFENONE
     Indication: Arrhythmia
     Dosage: 450 MG, QD, 150 MG, TID
     Route: 065
  8. PROPAFENONE [Suspect]
     Active Substance: PROPAFENONE
     Indication: Atrial fibrillation
     Dosage: 450 MG, QD  (METOPROLOL SUCCINATE 25 MG ONCE DAILY IN COMBINATION WITH PROPAFENONE DOSE OF 1)
     Route: 065
  9. ASPIRIN [Suspect]
     Active Substance: ASPIRIN
     Indication: Anticoagulant therapy
     Dosage: 150 MG, QD
     Route: 065

REACTIONS (9)
  - Facial asymmetry [Recovered/Resolved]
  - Speech disorder [Recovered/Resolved]
  - Transient ischaemic attack [Unknown]
  - Muscular weakness [Recovered/Resolved]
  - Epistaxis [Recovered/Resolved]
  - Dyspnoea [Unknown]
  - Fatigue [Unknown]
  - Heart rate irregular [Unknown]
  - Drug ineffective [Unknown]
